FAERS Safety Report 12884177 (Version 5)
Quarter: 2017Q1

REPORT INFORMATION
  Report Type: Spontaneous
  Country: JP (occurrence: JP)
  Receive Date: 20161026
  Receipt Date: 20170116
  Transmission Date: 20170428
  Serious: Yes (Death, Life-Threatening, Hospitalization)
  Sender: FDA-Public Use
  Company Number: JP-ABBVIE-16K-087-1762352-00

PATIENT
  Age: 74 Year
  Sex: Male
  Weight: 39.2 kg

DRUGS (7)
  1. PENTASA [Suspect]
     Active Substance: MESALAMINE
     Indication: COLITIS ULCERATIVE
     Route: 048
     Dates: start: 20160304, end: 20160416
  2. TOUGHMAC E [Concomitant]
     Active Substance: AMYLASE\LIPASE\PROTEASE
     Indication: COLITIS ULCERATIVE
     Route: 048
     Dates: start: 20160323
  3. HUMIRA [Suspect]
     Active Substance: ADALIMUMAB
     Route: 058
     Dates: start: 20160322, end: 20160322
  4. CLOSTRIDIUM BUTYRICUM [Concomitant]
     Active Substance: CLOSTRIDIUM BUTYRICUM SPORES STRAIN M-55
     Indication: COLITIS ULCERATIVE
     Route: 048
     Dates: start: 20160304
  5. HUMIRA [Suspect]
     Active Substance: ADALIMUMAB
     Indication: COLITIS ULCERATIVE
     Route: 058
     Dates: start: 20160308, end: 20160308
  6. HUMIRA [Suspect]
     Active Substance: ADALIMUMAB
     Route: 058
     Dates: start: 20150405, end: 20160416
  7. TRIMEBUTINE MALEATE [Concomitant]
     Active Substance: TRIMEBUTINE MALEATE
     Indication: COLITIS ULCERATIVE
     Route: 048
     Dates: start: 20160308

REACTIONS (16)
  - Hypoglycaemia [Recovering/Resolving]
  - Serum ferritin increased [Unknown]
  - Acute respiratory failure [Fatal]
  - Altered state of consciousness [Unknown]
  - Pleural effusion [Unknown]
  - C-reactive protein increased [Unknown]
  - Immunodeficiency [Unknown]
  - Aspartate aminotransferase increased [Unknown]
  - Pneumocystis jirovecii pneumonia [Fatal]
  - Blood glucose increased [Unknown]
  - Alanine aminotransferase increased [Unknown]
  - Pancytopenia [Fatal]
  - Pyrexia [Unknown]
  - Emphysema [Unknown]
  - Hepatic function abnormal [Unknown]
  - Gamma-glutamyltransferase increased [Unknown]

NARRATIVE: CASE EVENT DATE: 2016
